FAERS Safety Report 7331526-9 (Version None)
Quarter: 2011Q1

REPORT INFORMATION
  Report Type: 
  Country: None (occurrence: None)
  Receive Date: 20110228
  Receipt Date: 20110228
  Transmission Date: 20110831
  Serious: Yes (Other)
  Sender: FDA-Public Use
  Company Number: None

PATIENT
  Age: 14 Year
  Sex: Female
  Weight: 58.2 kg

DRUGS (1)
  1. IMIPRAMINE [Suspect]
     Indication: ENURESIS
     Dates: start: 20110106, end: 20110210

REACTIONS (2)
  - LEUKOCYTOCLASTIC VASCULITIS [None]
  - RASH [None]
